FAERS Safety Report 22292843 (Version 1)
Quarter: 2023Q2

REPORT INFORMATION
  Report Type: Spontaneous
  Country: DE (occurrence: DE)
  Receive Date: 20230508
  Receipt Date: 20230508
  Transmission Date: 20230722
  Serious: Yes (Other)
  Sender: FDA-Public Use
  Company Number: DE-CELLTRION INC.-2023DE007231

PATIENT

DRUGS (15)
  1. INFLIXIMAB [Suspect]
     Active Substance: INFLIXIMAB
     Indication: Colitis ulcerative
     Dosage: 2X 100 MG OF 4 PIECES AT 2 WEEKLY INTERVALS
     Route: 042
  2. INFLIXIMAB [Suspect]
     Active Substance: INFLIXIMAB
     Dosage: 400 MG
     Route: 042
     Dates: start: 20230131
  3. INFLIXIMAB [Suspect]
     Active Substance: INFLIXIMAB
     Dosage: 400 MG
     Route: 042
     Dates: start: 20230214
  4. INFLIXIMAB [Suspect]
     Active Substance: INFLIXIMAB
     Dosage: 300 MG
     Route: 042
     Dates: start: 20230427
  5. INFLIXIMAB [Suspect]
     Active Substance: INFLIXIMAB
     Indication: Colitis ulcerative
     Dosage: 120 MG PEN EVERY 2 WEEKS
     Route: 058
  6. INFLIXIMAB [Suspect]
     Active Substance: INFLIXIMAB
     Dosage: 120 MG
     Route: 058
     Dates: start: 20230315
  7. INFLIXIMAB [Suspect]
     Active Substance: INFLIXIMAB
     Dosage: 120 MG
     Route: 058
     Dates: start: 20230329
  8. INFLIXIMAB [Suspect]
     Active Substance: INFLIXIMAB
     Dosage: 120 MG
     Route: 058
     Dates: start: 20230411
  9. CORTISONE [Concomitant]
     Active Substance: CORTISONE
     Dosage: UNK
  10. CORTISONE [Concomitant]
     Active Substance: CORTISONE
     Dosage: 50 MG
     Dates: start: 20230131
  11. CORTISONE [Concomitant]
     Active Substance: CORTISONE
     Dosage: 50 MG
     Dates: start: 20230214
  12. CORTISONE [Concomitant]
     Active Substance: CORTISONE
     Dosage: 50 MG
     Dates: start: 20230427
  13. FISH OIL [Concomitant]
     Active Substance: FISH OIL
     Indication: Supplementation therapy
  14. PROBIOTICS NOS [Concomitant]
     Active Substance: PROBIOTICS NOS
     Indication: Supplementation therapy
  15. COLIBIOGEN [ESCHERICHIA COLI] [Concomitant]
     Indication: Supplementation therapy

REACTIONS (2)
  - Intestinal haemorrhage [Recovered/Resolved]
  - Treatment failure [Unknown]
